FAERS Safety Report 5561906-3 (Version None)
Quarter: 2007Q4

REPORT INFORMATION
  Report Type: 
  Country: None (occurrence: None)
  Receive Date: 20071215
  Receipt Date: 20071004
  Transmission Date: 20080405
  Serious: No
  Sender: FDA-Public Use
  Company Number: US-AMGEN-US246380

PATIENT
  Sex: Female

DRUGS (16)
  1. ARANESP [Suspect]
     Indication: MYELODYSPLASTIC SYNDROME
     Route: 058
     Dates: start: 20070726, end: 20071005
  2. SYNTHROID [Concomitant]
     Route: 065
     Dates: start: 20050323
  3. PREMARIN [Concomitant]
     Route: 065
     Dates: start: 20050323
  4. PLAVIX [Concomitant]
     Route: 065
     Dates: start: 20050323
  5. ASPIRIN [Concomitant]
     Route: 065
     Dates: start: 20050323
  6. PLAQUENIL [Concomitant]
     Route: 065
     Dates: start: 20050323
  7. DIOVAN [Concomitant]
     Route: 065
     Dates: start: 20050323
  8. BONIVA [Concomitant]
     Route: 065
     Dates: start: 20050323
  9. NEXIUM [Concomitant]
     Route: 065
     Dates: start: 20050323
  10. VOLTAREN [Concomitant]
     Route: 065
     Dates: start: 20050323
  11. BENTYL [Concomitant]
     Route: 065
     Dates: start: 20050323
  12. DARVOCET [Concomitant]
     Route: 065
     Dates: start: 20050323
  13. EFFEXOR [Concomitant]
     Route: 065
     Dates: start: 20050323
  14. QUININE SULFATE [Concomitant]
     Route: 065
     Dates: start: 20050323
  15. SLOW-MAG [Concomitant]
     Route: 065
     Dates: start: 20050323
  16. SLOW-FE [Concomitant]
     Route: 065
     Dates: start: 20050323

REACTIONS (4)
  - HYPOAESTHESIA [None]
  - PARAESTHESIA [None]
  - PLATELET COUNT INCREASED [None]
  - SPINAL COLUMN STENOSIS [None]
